FAERS Safety Report 18234650 (Version 2)
Quarter: 2021Q4

REPORT INFORMATION
  Report Type: Spontaneous
  Country: DE (occurrence: DE)
  Receive Date: 20200904
  Receipt Date: 20211003
  Transmission Date: 20220303
  Serious: Yes (Other)
  Sender: FDA-Public Use
  Company Number: NVSC2020DE242889

PATIENT

DRUGS (1)
  1. EVEROLIMUS [Suspect]
     Active Substance: EVEROLIMUS
     Indication: Neuroendocrine tumour
     Dosage: UNK, UNKNOWN
     Route: 065

REACTIONS (1)
  - Interstitial lung disease [Recovered/Resolved]
